FAERS Safety Report 8431692-8 (Version None)
Quarter: 2012Q2

REPORT INFORMATION
  Report Type: 
  Country: None (occurrence: None)
  Receive Date: 20120613
  Receipt Date: 20120604
  Transmission Date: 20120825
  Serious: Yes (Other)
  Sender: FDA-Public Use
  Company Number: US-JNJFOC-20110505599

PATIENT
  Sex: Female

DRUGS (2)
  1. LEVAQUIN [Suspect]
     Route: 042
  2. LEVAQUIN [Suspect]
     Indication: PNEUMONIA
     Route: 048
     Dates: start: 20090601

REACTIONS (4)
  - TENDONITIS [None]
  - TENOSYNOVITIS [None]
  - TENDON RUPTURE [None]
  - TENDON DISORDER [None]
